FAERS Safety Report 4736821-5 (Version None)
Quarter: 2005Q3

REPORT INFORMATION
  Report Type: 
  Country: None (occurrence: None)
  Receive Date: 20050808
  Receipt Date: 20050726
  Transmission Date: 20060218
  Serious: Yes (Hospitalization)
  Sender: FDA-Public Use
  Company Number: US-MERCK-0507USA04182

PATIENT
  Age: 33 Year
  Sex: Male

DRUGS (2)
  1. CANCIDAS [Suspect]
     Indication: CANDIDIASIS
     Route: 042
  2. FLUCONAZOLE [Concomitant]
     Route: 065

REACTIONS (2)
  - CANDIDA ENDOPHTHALMITIS [None]
  - DRUG INEFFECTIVE [None]
